FAERS Safety Report 8592890 (Version 4)
Quarter: 2014Q2

REPORT INFORMATION
  Report Type: Spontaneous
  Country: US (occurrence: US)
  Receive Date: 20120604
  Receipt Date: 20140401
  Transmission Date: 20141212
  Serious: No
  Sender: FDA-Public Use
  Company Number: US-ASTRAZENECA-2012SE34709

PATIENT
  Age: 18120 Day
  Sex: Female
  Weight: 117.9 kg

DRUGS (28)
  1. NEXIUM [Suspect]
     Indication: GASTROOESOPHAGEAL REFLUX DISEASE
     Route: 048
  2. NEXIUM [Suspect]
     Indication: GASTROOESOPHAGEAL REFLUX DISEASE
     Route: 048
     Dates: start: 20051227
  3. PROTONIX [Concomitant]
  4. ZANTAC [Concomitant]
  5. PEPTO BISMOL [Concomitant]
  6. TUMS [Concomitant]
  7. AMPHETAMINE SALT [Concomitant]
  8. HYDROCODONE [Concomitant]
     Dosage: 10- 500
     Dates: start: 20050207
  9. VITAMIN E [Concomitant]
  10. DEXAMETHASONE [Concomitant]
  11. TRAMADOL HCL [Concomitant]
  12. CALCIUM [Concomitant]
  13. AMOXICILLIN [Concomitant]
  14. FLUCONAZOLE [Concomitant]
     Dates: start: 20060223
  15. BYETTA [Concomitant]
     Dosage: 1 MG
  16. LEVOTHYROXINE [Concomitant]
  17. ALPRAZOLAM [Concomitant]
     Dates: start: 20050207
  18. ZITHROMAX [Concomitant]
     Dates: start: 20050223
  19. CLARINEX [Concomitant]
     Dates: start: 20050223
  20. METHYLPREDNISOLONE [Concomitant]
     Dates: start: 20050223
  21. ZYRTEC [Concomitant]
     Dates: start: 20050922
  22. AMBIEN [Concomitant]
     Dates: start: 20051108
  23. ONDASETRON [Concomitant]
     Dates: start: 20121023
  24. CORTISONE [Concomitant]
  25. SYNVISC [Concomitant]
  26. LORTAB [Concomitant]
  27. ADDERALL [Concomitant]
  28. XANAX [Concomitant]

REACTIONS (8)
  - Osteoporosis [Unknown]
  - Multiple fractures [Unknown]
  - Thyroid disorder [Unknown]
  - Arthritis [Unknown]
  - Osteoarthritis [Unknown]
  - Bursitis [Unknown]
  - Tendonitis [Unknown]
  - Joint effusion [Unknown]
